FAERS Safety Report 7443832-8 (Version None)
Quarter: 2011Q2

REPORT INFORMATION
  Report Type: 
  Country: None (occurrence: None)
  Receive Date: 20110428
  Receipt Date: 20110421
  Transmission Date: 20111010
  Serious: Yes (Other)
  Sender: FDA-Public Use
  Company Number: US-RB-014339-10

PATIENT
  Age: 39 Year
  Sex: Male

DRUGS (1)
  1. SUBOXONE [Suspect]
     Indication: PRODUCT USED FOR UNKNOWN INDICATION
     Dosage: DOSING INFORMATION UNKNOWN
     Route: 065

REACTIONS (39)
  - SUICIDE ATTEMPT [None]
  - DEPRESSION [None]
  - INSOMNIA [None]
  - DECREASED APPETITE [None]
  - POOR PERSONAL HYGIENE [None]
  - INTENTIONAL DRUG MISUSE [None]
  - MOOD SWINGS [None]
  - GAIT DISTURBANCE [None]
  - OCULAR HYPERAEMIA [None]
  - FEELING ABNORMAL [None]
  - PARANOIA [None]
  - FOOT FRACTURE [None]
  - IMPAIRED HEALING [None]
  - SKIN DISORDER [None]
  - ABNORMAL LOSS OF WEIGHT [None]
  - ANKLE FRACTURE [None]
  - DEPRESSED LEVEL OF CONSCIOUSNESS [None]
  - IRRITABILITY [None]
  - JOINT SWELLING [None]
  - TREMOR [None]
  - OPEN WOUND [None]
  - TENSION [None]
  - SUICIDAL IDEATION [None]
  - BACK INJURY [None]
  - EMOTIONAL DISORDER [None]
  - CONTUSION [None]
  - LACERATION [None]
  - SOCIAL AVOIDANT BEHAVIOUR [None]
  - PAIN IN EXTREMITY [None]
  - OEDEMA PERIPHERAL [None]
  - ASTHENIA [None]
  - PANIC ATTACK [None]
  - MENTAL DISORDER [None]
  - CONDITION AGGRAVATED [None]
  - ARTHRALGIA [None]
  - STRESS [None]
  - BACK PAIN [None]
  - SKIN INFECTION [None]
  - FATIGUE [None]
